FAERS Safety Report 7100643-0 (Version None)
Quarter: 2010Q4

REPORT INFORMATION
  Report Type: 
  Country: None (occurrence: None)
  Receive Date: 20101113
  Receipt Date: 20100414
  Transmission Date: 20110411
  Serious: Yes (Death)
  Sender: FDA-Public Use
  Company Number: US-ALLERGAN-1002470US

PATIENT
  Age: 81 Year
  Sex: Female

DRUGS (11)
  1. BOTOX [Suspect]
     Indication: DYSTONIA
     Dosage: 300 UNITS, SINGLE
     Route: 030
     Dates: start: 20100223, end: 20100223
  2. BOTOX [Suspect]
     Dosage: 300 UNK, UNK
     Dates: start: 20081114, end: 20081114
  3. BOTOX [Suspect]
     Dosage: 170 UNK, UNK
     Dates: start: 20080815, end: 20080815
  4. METOPROLOL [Concomitant]
     Indication: HYPERTENSION
     Dosage: 5 MG, QD
  5. ASPIRIN [Concomitant]
     Dosage: 81 MG, QD
  6. FLEXERIL [Suspect]
     Indication: MUSCLE SPASTICITY
     Dosage: UNK
  7. EXELON [Suspect]
     Indication: AMNESIA
     Dosage: 3 MG, BID
  8. ZOCOR [Concomitant]
     Dosage: 20 MG, QD
  9. SELEGILINE [Concomitant]
     Indication: PARKINSON'S DISEASE
     Dosage: 5 MG, BID
  10. SINEMET [Concomitant]
     Dosage: UNK
  11. COQ-10 [Concomitant]
     Dosage: 1200 MG, QD

REACTIONS (1)
  - DEATH [None]
